FAERS Safety Report 23832799 (Version 3)
Quarter: 2025Q4

REPORT INFORMATION
  Report Type: Spontaneous
  Country: US (occurrence: US)
  Receive Date: 20240508
  Receipt Date: 20251008
  Transmission Date: 20260118
  Serious: No
  Sender: SANOFI AVENTIS
  Company Number: US-SA-SAC20240503000230

PATIENT
  Sex: Male
  Weight: 68.38 kg

DRUGS (2)
  1. FABRAZYME [Suspect]
     Active Substance: AGALSIDASE BETA
     Indication: Fabry^s disease
     Dosage: 100 MG (70+30), QOW
     Route: 042
     Dates: start: 202111
  2. FABRAZYME [Suspect]
     Active Substance: AGALSIDASE BETA
     Dosage: 120 MG (105+15), QOW
     Route: 042

REACTIONS (3)
  - Weight decreased [Unknown]
  - Diarrhoea [Unknown]
  - Incorrect dose administered [Unknown]

NARRATIVE: CASE EVENT DATE: 20240101
